FAERS Safety Report 5105892-9 (Version None)
Quarter: 2006Q3

REPORT INFORMATION
  Report Type: 
  Country: None (occurrence: None)
  Receive Date: 20060912
  Receipt Date: 20060825
  Transmission Date: 20061208
  Serious: Yes (Hospitalization, Other)
  Sender: FDA-Public Use
  Company Number: USA0508105839

PATIENT
  Age: 68 Year
  Sex: Male

DRUGS (1)
  1. CIALIS [Suspect]
     Indication: ERECTILE DYSFUNCTION
     Dosage: 20 MG, AS NEEDED, ORAL
     Route: 048
     Dates: start: 20040801

REACTIONS (11)
  - BLINDNESS TRANSIENT [None]
  - DRUG INEFFECTIVE [None]
  - ERECTILE DYSFUNCTION [None]
  - ERECTION INCREASED [None]
  - LOSS OF CONSCIOUSNESS [None]
  - OEDEMA PERIPHERAL [None]
  - PAIN IN EXTREMITY [None]
  - PHOTOPHOBIA [None]
  - RETINAL DISORDER [None]
  - VISION BLURRED [None]
  - VISUAL DISTURBANCE [None]
